FAERS Safety Report 7473078-9 (Version None)
Quarter: 2011Q2

REPORT INFORMATION
  Report Type: 
  Country: None (occurrence: None)
  Receive Date: 20110511
  Receipt Date: 20110429
  Transmission Date: 20111010
  Serious: Yes (Hospitalization, Other)
  Sender: FDA-Public Use
  Company Number: US-ELI_LILLY_AND_COMPANY-US201105000634

PATIENT
  Sex: Female

DRUGS (2)
  1. CYMBALTA [Suspect]
     Indication: DEPRESSION
     Dosage: 60 MG, BID
     Route: 065
     Dates: start: 20090101
  2. CYMBALTA [Suspect]
     Dosage: 30 MG, QID
     Route: 065

REACTIONS (5)
  - MALAISE [None]
  - APATHY [None]
  - MIGRAINE [None]
  - ACCIDENT AT WORK [None]
  - KNEE ARTHROPLASTY [None]
